FAERS Safety Report 17525580 (Version 1)
Quarter: 2020Q1

REPORT INFORMATION
  Report Type: Spontaneous
  Country: US (occurrence: US)
  Receive Date: 20200311
  Receipt Date: 20200311
  Transmission Date: 20200409
  Serious: No
  Sender: FDA-Public Use
  Company Number: None

PATIENT

DRUGS (1)
  1. POTASSIUM CHLORIDE 20 MEQ / 15 ML [Suspect]
     Active Substance: POTASSIUM CHLORIDE

REACTIONS (1)
  - Product barcode issue [None]
